FAERS Safety Report 18295306 (Version 1)
Quarter: 2020Q3

REPORT INFORMATION
  Report Type: Spontaneous
  Country: PL (occurrence: PL)
  Receive Date: 20200922
  Receipt Date: 20200922
  Transmission Date: 20201103
  Serious: Yes (Hospitalization)
  Sender: FDA-Public Use
  Company Number: PL-FRESENIUS KABI-FK202009691

PATIENT
  Age: 48 Year
  Sex: Female

DRUGS (2)
  1. PACLITAXEL (MANUFACTURER UNKNOWN) [Suspect]
     Active Substance: PACLITAXEL
     Indication: BREAST CANCER METASTATIC
     Dosage: TOTAL DOSE PER CYCLE 100 MG
     Route: 065
  2. PACLITAXEL (MANUFACTURER UNKNOWN) [Suspect]
     Active Substance: PACLITAXEL
     Indication: LYMPHANGIOSIS CARCINOMATOSA

REACTIONS (5)
  - General physical health deterioration [Unknown]
  - Drug ineffective [Unknown]
  - Drug resistance [Unknown]
  - Dyspnoea [Unknown]
  - Anxiety [Unknown]
